FAERS Safety Report 5288879-5 (Version None)
Quarter: 2007Q1

REPORT INFORMATION
  Report Type: 
  Country: None (occurrence: None)
  Receive Date: 20070118
  Receipt Date: 20061110
  Transmission Date: 20070707
  Serious: Yes (Other)
  Sender: FDA-Public Use
  Company Number: HQWYE640116NOV06

PATIENT
  Age: 67 Year
  Sex: Female
  Weight: 72.64 kg

DRUGS (4)
  1. ADVIL PM [Suspect]
     Indication: ARTHRITIS
     Dosage: 2 TABLET 1 X PER 1 DAY ORAL
     Route: 048
     Dates: start: 20061107, end: 20061109
  2. ADVIL PM [Suspect]
     Indication: PAIN
     Dosage: 2 TABLET 1 X PER 1 DAY ORAL
     Route: 048
     Dates: start: 20061107, end: 20061109
  3. ZETIA [Concomitant]
  4. ZESTRIL [Concomitant]

REACTIONS (1)
  - DRUG EFFECT DECREASED [None]
